FAERS Safety Report 10685595 (Version 1)
Quarter: 2014Q4

REPORT INFORMATION
  Report Type: Spontaneous
  Country: US (occurrence: US)
  Receive Date: 20141231
  Receipt Date: 20141231
  Transmission Date: 20150529
  Serious: No
  Sender: FDA-Public Use
  Company Number: US-TARO-2014TAR00203

PATIENT
  Sex: Female

DRUGS (2)
  1. UNSPECIFIED MEDICATIONS [Concomitant]
     Active Substance: UNSPECIFIED INGREDIENT
  2. HYDROCORTISONE CREAM USP 2.5% [Suspect]
     Active Substance: HYDROCORTISONE
     Indication: HAEMORRHOIDS
     Dosage: UNK, 2X/DAY
     Route: 061
     Dates: start: 201404

REACTIONS (1)
  - Abdominal pain upper [Unknown]

NARRATIVE: CASE EVENT DATE: 201407
